FAERS Safety Report 8270154-8 (Version None)
Quarter: 2012Q2

REPORT INFORMATION
  Report Type: 
  Country: None (occurrence: None)
  Receive Date: 20120410
  Receipt Date: 20120403
  Transmission Date: 20120825
  Serious: Yes (Other)
  Sender: FDA-Public Use
  Company Number: PHHY2012FR029502

PATIENT
  Age: 69 Year
  Sex: Male

DRUGS (3)
  1. CABAZITAXEL [Suspect]
     Dates: start: 20110801
  2. NEULASTA [Suspect]
     Dosage: 6 MG, UNK
     Route: 058
     Dates: start: 20110803
  3. ZOMETA [Suspect]
     Dosage: 4 MG/5ML
     Dates: start: 20110801

REACTIONS (1)
  - COOMBS POSITIVE HAEMOLYTIC ANAEMIA [None]
